FAERS Safety Report 23955351 (Version 1)
Quarter: 2024Q2

REPORT INFORMATION
  Report Type: Spontaneous
  Country: TW (occurrence: TW)
  Receive Date: 20240610
  Receipt Date: 20240610
  Transmission Date: 20240715
  Serious: Yes (Death, Other)
  Sender: FDA-Public Use
  Company Number: TW-PHATHOM PHARMACEUTICALS INC.-2024PHT00393

PATIENT
  Age: 76 Year
  Sex: Male

DRUGS (1)
  1. VONOPRAZAN [Suspect]
     Active Substance: VONOPRAZAN
     Indication: Hyperchlorhydria
     Dosage: 20 MG, 1X/DAY
     Route: 048

REACTIONS (2)
  - Death [Fatal]
  - Product use in unapproved indication [Unknown]
